FAERS Safety Report 7604532-4 (Version None)
Quarter: 2011Q3

REPORT INFORMATION
  Report Type: 
  Country: None (occurrence: None)
  Receive Date: 20110712
  Receipt Date: 20110705
  Transmission Date: 20111222
  Serious: Yes (Hospitalization, Other)
  Sender: FDA-Public Use
  Company Number: AU-ABBOTT-11P-008-0836742-00

PATIENT
  Sex: Male

DRUGS (5)
  1. OXYCODONE HCL [Concomitant]
     Indication: PRODUCT USED FOR UNKNOWN INDICATION
     Dosage: WHEN REQUIRED
  2. METHOTREXATE [Suspect]
     Indication: PRODUCT USED FOR UNKNOWN INDICATION
     Dates: start: 20100101
  3. OXYCONTIN [Concomitant]
     Indication: PRODUCT USED FOR UNKNOWN INDICATION
  4. HUMIRA [Suspect]
     Indication: RHEUMATOID ARTHRITIS
     Dates: start: 20100101
  5. ANTI-INFLAMMATORIES [Concomitant]
     Indication: PRODUCT USED FOR UNKNOWN INDICATION

REACTIONS (9)
  - NASAL POLYPS [None]
  - ARTHROPATHY [None]
  - DRY MOUTH [None]
  - LABORATORY TEST ABNORMAL [None]
  - FATIGUE [None]
  - DRUG INTERACTION [None]
  - APPARENT DEATH [None]
  - VITAMIN D DECREASED [None]
  - OPERATIVE HAEMORRHAGE [None]
